FAERS Safety Report 12865245 (Version 1)
Quarter: 2016Q4

REPORT INFORMATION
  Report Type: Spontaneous
  Country: DE (occurrence: DE)
  Receive Date: 20161020
  Receipt Date: 20161020
  Transmission Date: 20170207
  Serious: Yes (Hospitalization)
  Sender: FDA-Public Use
  Company Number: DE-SUN PHARMACEUTICAL INDUSTRIES LTD-2016RR-126104

PATIENT
  Sex: Female

DRUGS (1)
  1. CIPROFLOXACIN. [Suspect]
     Active Substance: CIPROFLOXACIN
     Indication: NASOPHARYNGITIS
     Dosage: 500 MG, UNK
     Route: 048
     Dates: start: 2016

REACTIONS (3)
  - Visual impairment [Unknown]
  - Dizziness [Unknown]
  - Movement disorder [Unknown]

NARRATIVE: CASE EVENT DATE: 2016
